FAERS Safety Report 8961424 (Version 1)
Quarter: 2012Q4

REPORT INFORMATION
  Report Type: 
  Country: US (occurrence: US)
  Receive Date: 20121212
  Receipt Date: 20121212
  Transmission Date: 20130627
  Serious: Yes (Hospitalization)
  Sender: FDA-Public Use
  Company Number: US-US-EMD SERONO, INC.-7180418

PATIENT
  Sex: Female

DRUGS (1)
  1. REBIF [Suspect]
     Indication: MULTIPLE SCLEROSIS
     Route: 058
     Dates: start: 20081218

REACTIONS (8)
  - Cardiac failure [Unknown]
  - Hypersomnia [Unknown]
  - Oedema peripheral [Unknown]
  - Weight decreased [Unknown]
  - Decreased appetite [Unknown]
  - Multiple sclerosis relapse [Unknown]
  - Injection site nodule [Unknown]
  - Drug ineffective [Unknown]
